FAERS Safety Report 13859933 (Version 2)
Quarter: 2017Q3

REPORT INFORMATION
  Report Type: Spontaneous
  Country: NZ (occurrence: NZ)
  Receive Date: 20170811
  Receipt Date: 20170914
  Transmission Date: 20171127
  Serious: Yes (Hospitalization)
  Sender: FDA-Public Use
  Company Number: NZ-GLAXOSMITHKLINE-NZ2017GSK122694

PATIENT
  Age: 59 Year
  Sex: Female

DRUGS (1)
  1. SCOPODERM/TRANSDERM-SCOP [Suspect]
     Active Substance: SCOPOLAMINE HYDROBROMIDE
     Indication: PROPHYLAXIS OF NAUSEA AND VOMITING
     Dosage: 1.5 MG, 1D
     Route: 062
     Dates: start: 20160926, end: 20160930

REACTIONS (7)
  - Wrong technique in product usage process [Unknown]
  - Product use in unapproved indication [Unknown]
  - Mydriasis [Recovered/Resolved]
  - Vision blurred [Recovered/Resolved]
  - Photophobia [Unknown]
  - Palpitations [Unknown]
  - Off label use [Unknown]

NARRATIVE: CASE EVENT DATE: 20160930
